FAERS Safety Report 9164514 (Version 1)
Quarter: 2013Q1

REPORT INFORMATION
  Report Type: Spontaneous
  Country: AR (occurrence: AR)
  Receive Date: 20130315
  Receipt Date: 20130315
  Transmission Date: 20140127
  Serious: Yes (Other)
  Sender: FDA-Public Use
  Company Number: PHHY2012AR056754

PATIENT
  Age: 24 Year
  Sex: Female
  Weight: 92 kg

DRUGS (2)
  1. GLIVEC [Suspect]
     Dosage: UNK
     Dates: end: 201209
  2. INTERFERON [Suspect]
     Dosage: UNK
     Dates: start: 201209

REACTIONS (5)
  - Pre-eclampsia [Unknown]
  - Maternal exposure during pregnancy [Unknown]
  - Normal newborn [Unknown]
  - Therapeutic response decreased [Unknown]
  - Drug resistance [Unknown]
